FAERS Safety Report 9193742 (Version 1)
Quarter: 2013Q1

REPORT INFORMATION
  Report Type: Spontaneous
  Country: IN (occurrence: IN)
  Receive Date: 20130327
  Receipt Date: 20130327
  Transmission Date: 20140127
  Serious: Yes (Hospitalization)
  Sender: FDA-Public Use
  Company Number: IN-COVIDIEN/TYCO HEALTHCARE/MALLINCKRODT-T201301375

PATIENT
  Age: 5 Year
  Sex: Male

DRUGS (2)
  1. OPTIRAY [Suspect]
     Indication: COMPUTERISED TOMOGRAM
     Dosage: 2 ML, SINGLE, TEST DOSE
     Route: 042
     Dates: start: 20130315, end: 20130315
  2. OPTIRAY [Suspect]
     Dosage: 20 ML, SINGLE
     Route: 042
     Dates: start: 20130315, end: 20130315

REACTIONS (6)
  - Fatigue [Recovered/Resolved]
  - Rash generalised [Recovered/Resolved]
  - Dizziness [Recovered/Resolved]
  - Vomiting [Recovered/Resolved]
  - Pruritus [Recovered/Resolved]
  - Angioedema [Recovered/Resolved]
